FAERS Safety Report 9559621 (Version 4)
Quarter: 2013Q4

REPORT INFORMATION
  Report Type: Spontaneous
  Country: US (occurrence: None)
  Receive Date: 20130925
  Receipt Date: 20131224
  Transmission Date: 20140711
  Serious: Yes (Hospitalization)
  Sender: FDA-Public Use
  Company Number: UTC-037733

PATIENT
  Age: 45 Year
  Sex: Female

DRUGS (6)
  1. TYVASO [Suspect]
     Indication: COR PULMONALE CHRONIC
     Route: 055
     Dates: start: 20120314, end: 201308
  2. LETAIRIS [Suspect]
     Indication: PULMONARY HYPERTENSION
     Route: 048
     Dates: start: 20100225
  3. LETAIRIS [Suspect]
     Indication: SCLERODERMA
     Route: 048
     Dates: start: 20100225
  4. LETAIRIS [Suspect]
     Indication: AUTOIMMUNE DISORDER
     Route: 048
     Dates: start: 20100225
  5. LETAIRIS [Suspect]
     Route: 048
     Dates: start: 20100225
  6. REVATIO (SILDENAFIL CITRATE) [Concomitant]

REACTIONS (8)
  - Pyrexia [None]
  - Sinusitis [None]
  - Epistaxis [None]
  - Respiratory tract congestion [None]
  - Sinus disorder [None]
  - Sinus congestion [None]
  - Upper respiratory tract infection [None]
  - Epistaxis [None]
